FAERS Safety Report 8491480-3 (Version None)
Quarter: 2012Q2

REPORT INFORMATION
  Report Type: 
  Country: None (occurrence: None)
  Receive Date: 20120627
  Receipt Date: 20120619
  Transmission Date: 20120825
  Serious: Yes (Death)
  Sender: FDA-Public Use
  Company Number: JPI-P-022231

PATIENT
  Age: 91 Year
  Sex: Male

DRUGS (9)
  1. ATORVASTATIN [Concomitant]
  2. CALCITRIOL [Concomitant]
  3. TIOTROPIUM [Concomitant]
  4. CALCIUM CITRATE [Concomitant]
  5. XYREM [Suspect]
     Indication: SLEEP DISORDER
     Dosage: ORAL
     Route: 048
     Dates: start: 20051219
  6. LEVOTHYROXINE SODIUM [Concomitant]
  7. ALENDRONATE SODIUM [Concomitant]
  8. COQ10 [Concomitant]
  9. MULTIVITAMIN AND MINERAL [Concomitant]

REACTIONS (1)
  - THERAPEUTIC RESPONSE DECREASED [None]
